FAERS Safety Report 9146278 (Version 1)
Quarter: 2013Q1

REPORT INFORMATION
  Report Type: Spontaneous
  Country: US (occurrence: None)
  Receive Date: 20130227
  Receipt Date: 20130227
  Transmission Date: 20140127
  Serious: Yes (Other)
  Sender: FDA-Public Use
  Company Number: None

PATIENT
  Sex: Female
  Weight: 86 kg

DRUGS (3)
  1. NTG NATURALS PURIFYING FACIAL CLNSR 6OZ [Suspect]
     Indication: THERAPEUTIC SKIN CARE TOPICAL
     Dosage: 1PUMP, 2X DAY, TOPICAL
     Route: 050
  2. DIOVAN (VALSARTAN) [Concomitant]
  3. NTG AGELESS INTENSIVES DEEP WRINKLE MOISTURE SPF20 [Suspect]
     Indication: SKIN WRINKLING
     Dosage: DIME SIZE, 1X DAY, TOPICAL
     Route: 061

REACTIONS (4)
  - Rash erythematous [None]
  - Pruritus [None]
  - Burning sensation [None]
  - Psoriasis [None]
